FAERS Safety Report 4878822-2 (Version None)
Quarter: 2006Q1

REPORT INFORMATION
  Report Type: 
  Country: None (occurrence: None)
  Receive Date: 20060112
  Receipt Date: 20060106
  Transmission Date: 20060701
  Serious: Yes (Other)
  Sender: FDA-Public Use
  Company Number: US-GLAXOSMITHKLINE-A0588144A

PATIENT
  Age: 79 Year
  Sex: Male

DRUGS (12)
  1. AVANDIA [Suspect]
     Dosage: 4MG TWICE PER DAY
     Route: 048
  2. AVANDAMET [Suspect]
     Dosage: 1TAB TWICE PER DAY
     Route: 048
  3. METFORMIN [Concomitant]
  4. TOPROL-XL [Concomitant]
  5. LISINOPRIL [Concomitant]
  6. ZETIA [Concomitant]
  7. LIPITOR [Concomitant]
  8. PLAVIX [Concomitant]
  9. ISOSORBIDE MONONITRATE [Concomitant]
  10. ASPIRIN [Concomitant]
  11. NORVASC [Concomitant]
  12. IRON SUPPLEMENT [Concomitant]

REACTIONS (4)
  - ANAEMIA [None]
  - HYPERGLYCAEMIA [None]
  - VISION BLURRED [None]
  - VISUAL ACUITY REDUCED [None]
